FAERS Safety Report 4737854-5 (Version None)
Quarter: 2005Q3

REPORT INFORMATION
  Report Type: 
  Country: None (occurrence: None)
  Receive Date: 20050809
  Receipt Date: 20050729
  Transmission Date: 20060218
  Serious: Yes (Other)
  Sender: FDA-Public Use
  Company Number: PHEH2005US08410

PATIENT
  Age: 44 Year
  Sex: Male

DRUGS (4)
  1. LAMISIL [Suspect]
     Indication: NAIL TINEA
     Dosage: 250 MG, QD
     Route: 048
     Dates: start: 20050601
  2. LIPITOR [Suspect]
     Indication: HYPERCHOLESTEROLAEMIA
     Route: 048
  3. ZETIA [Concomitant]
  4. ZYRTEC [Concomitant]

REACTIONS (5)
  - DYSSTASIA [None]
  - FATIGUE [None]
  - MUSCULAR WEAKNESS [None]
  - VISION BLURRED [None]
  - VISUAL ACUITY REDUCED [None]
